FAERS Safety Report 7593699-2 (Version None)
Quarter: 2011Q3

REPORT INFORMATION
  Report Type: 
  Country: None (occurrence: None)
  Receive Date: 20110706
  Receipt Date: 20110622
  Transmission Date: 20111222
  Serious: Yes (Other)
  Sender: FDA-Public Use
  Company Number: PHHY2011FR55978

PATIENT
  Sex: Male

DRUGS (4)
  1. RASILEZ [Suspect]
     Indication: HYPERTENSION
     Dosage: 150 MG, UNK
     Route: 048
  2. CALCIUM CHANNEL BLOCKERS [Concomitant]
     Indication: HYPERTENSION
  3. RENIN-ANGIOTENSIN SYSTEM, AGENTS ACTING ON [Concomitant]
     Indication: HYPERTENSION
  4. BETA ADRENERGIC BLOCKING DRUGS [Concomitant]
     Indication: HYPERTENSION

REACTIONS (2)
  - ABDOMINAL PAIN [None]
  - SPLENIC EMBOLISM [None]
